FAERS Safety Report 19023193 (Version 1)
Quarter: 2021Q1

REPORT INFORMATION
  Report Type: Spontaneous
  Country: GR (occurrence: GR)
  Receive Date: 20210318
  Receipt Date: 20210318
  Transmission Date: 20210420
  Serious: Yes (Other)
  Sender: FDA-Public Use
  Company Number: GR-SUN PHARMACEUTICAL INDUSTRIES LTD-2020R1-240299

PATIENT
  Age: 56 Year
  Sex: Female

DRUGS (2)
  1. DULOXETINE. [Suspect]
     Active Substance: DULOXETINE
     Dosage: 90 MG
  2. DULOXETINE. [Suspect]
     Active Substance: DULOXETINE
     Indication: PRODUCT USED FOR UNKNOWN INDICATION
     Dosage: 60 MG
     Route: 065

REACTIONS (1)
  - Spasmodic dysphonia [Unknown]
